FAERS Safety Report 8178524-3 (Version None)
Quarter: 2012Q1

REPORT INFORMATION
  Report Type: 
  Country: None (occurrence: None)
  Receive Date: 20120301
  Receipt Date: 20120228
  Transmission Date: 20120608
  Serious: Yes (Death, Hospitalization)
  Sender: FDA-Public Use
  Company Number: PHHY2012FR017418

PATIENT
  Sex: Male

DRUGS (11)
  1. LIORESAL [Suspect]
     Indication: DRUG DEPENDENCE
     Dosage: 100 MG, UNK
     Dates: start: 20110701
  2. LIORESAL [Suspect]
     Dosage: 175 MG, UNK
  3. LIORESAL [Suspect]
     Dosage: 100 MG, UNK
     Dates: start: 20111114
  4. METHADONE HCL [Suspect]
     Dosage: 30 MG, UNK
  5. LIORESAL [Suspect]
     Dosage: 40 MG, TID
  6. METHADONE HCL [Suspect]
     Indication: DRUG DEPENDENCE
     Dosage: 80 MG, UNK
     Dates: start: 20090501
  7. ZYPREXA [Concomitant]
     Dosage: 20 MG, UNK
  8. CHLORPROMAZINE HCL [Concomitant]
     Dosage: 200 MG, UNK
     Dates: start: 20111001
  9. LIORESAL [Suspect]
     Dosage: 320 MG, UNK
  10. IMOVANE [Concomitant]
     Dosage: 7.5 MG, UNK
     Dates: start: 20111001
  11. METHADONE HCL [Suspect]
     Dosage: 20 MG, UNK

REACTIONS (14)
  - INSOMNIA [None]
  - MANIA [None]
  - DELIRIUM [None]
  - TENSION [None]
  - INTENTIONAL DRUG MISUSE [None]
  - DYSPHORIA [None]
  - ABNORMAL BEHAVIOUR [None]
  - EMOTIONAL POVERTY [None]
  - COMPLETED SUICIDE [None]
  - EUPHORIC MOOD [None]
  - JUDGEMENT IMPAIRED [None]
  - IRRITABILITY [None]
  - MENTAL DISORDER [None]
  - HYPOMANIA [None]
